FAERS Safety Report 5382223-0 (Version None)
Quarter: 2007Q3

REPORT INFORMATION
  Report Type: 
  Country: None (occurrence: None)
  Receive Date: 20070709
  Receipt Date: 20070628
  Transmission Date: 20080115
  Serious: Yes (Hospitalization)
  Sender: FDA-Public Use
  Company Number: JP-JNJFOC-20070700324

PATIENT
  Age: 7 Decade
  Sex: Female

DRUGS (4)
  1. ITRACONAZOLE [Suspect]
     Indication: TINEA INFECTION
     Route: 048
  2. MANIDIPINE HYDROCHLORIDE [Concomitant]
     Indication: HYPERTENSION
     Route: 048
  3. ATORVASTATIN CALCIUM [Concomitant]
     Indication: HYPERLIPIDAEMIA
     Route: 048
  4. DOXAZOSIN MESYLATE [Concomitant]
     Indication: HYPERTENSION
     Route: 048

REACTIONS (2)
  - GENERALISED OEDEMA [None]
  - PLEURAL EFFUSION [None]
